FAERS Safety Report 12975458 (Version 1)
Quarter: 2016Q4

REPORT INFORMATION
  Report Type: Spontaneous
  Country: US (occurrence: US)
  Receive Date: 20161122
  Receipt Date: 20161122
  Transmission Date: 20170207
  Serious: Yes (Hospitalization)
  Sender: FDA-Public Use
  Company Number: None

PATIENT
  Age: 68 Year
  Sex: Male
  Weight: 58.2 kg

DRUGS (1)
  1. SULFAMETHOXAZOLE/TRIMETHOPRIM [Suspect]
     Active Substance: SULFAMETHOXAZOLE\TRIMETHOPRIM
     Indication: URINARY TRACT INFECTION
     Dosage: 800/160 MG EVERY DAY PO
     Route: 048
     Dates: start: 20160825, end: 20160902

REACTIONS (3)
  - Acute kidney injury [None]
  - Tubulointerstitial nephritis [None]
  - Nephritis [None]

NARRATIVE: CASE EVENT DATE: 20160911
